FAERS Safety Report 8759198 (Version 1)
Quarter: 2012Q4

REPORT INFORMATION
  Report Type: 
  Country: US (occurrence: US)
  Receive Date: 20120829
  Receipt Date: 20120829
  Transmission Date: 20130627
  Serious: Yes (Hospitalization)
  Sender: FDA-Public Use
  Company Number: US-BAYER-2012-087880

PATIENT
  Age: 41 Year
  Sex: Female

DRUGS (6)
  1. YASMIN [Suspect]
     Indication: CONTRACEPTION
  2. YAZ [Suspect]
  3. OCELLA [Suspect]
  4. COMBIVENT [Concomitant]
     Route: 045
  5. SINGULAIR [Concomitant]
     Dosage: 10 mg, UNK
     Route: 048
  6. HYDROCODONE/ACETAMINOPHEN [Concomitant]
     Indication: LIMB DISCOMFORT

REACTIONS (2)
  - Pulmonary embolism [None]
  - Deep vein thrombosis [None]
